FAERS Safety Report 4438722-9 (Version None)
Quarter: 2004Q3

REPORT INFORMATION
  Report Type: 
  Country: None (occurrence: None)
  Receive Date: 20040830
  Receipt Date: 20040812
  Transmission Date: 20050211
  Serious: Yes (Death, Hospitalization)
  Sender: FDA-Public Use
  Company Number: 702151

PATIENT
  Age: 77 Year
  Sex: Female
  Weight: 209 kg

DRUGS (12)
  1. ALEFACEPT [Suspect]
     Indication: PSORIASIS
     Dosage: 15 MG QW IM
     Route: 030
     Dates: start: 20030424, end: 20030710
  2. ALEFACEPT [Suspect]
     Indication: PSORIASIS
     Dosage: 15 MG QW IM
     Route: 030
     Dates: start: 20031030, end: 20040114
  3. ATENOLOL [Concomitant]
  4. ENALAPRIL MALEATE [Concomitant]
  5. GLUCOPHAGE ^UNS' [Concomitant]
  6. GLIPIZIDE [Concomitant]
  7. ALLOPURINOL [Concomitant]
  8. LIPITOR [Concomitant]
  9. VITAMIN B-12 [Concomitant]
  10. ASPIRIN [Concomitant]
  11. IBUPROFEN [Concomitant]
  12. ADVAIR DISKUS 100/50 [Concomitant]

REACTIONS (18)
  - ACUTE MYOCARDIAL INFARCTION [None]
  - ATRIAL FIBRILLATION [None]
  - CARDIAC FAILURE CONGESTIVE [None]
  - CEREBROVASCULAR ACCIDENT [None]
  - COLON CANCER [None]
  - HAEMATOCRIT DECREASED [None]
  - HAEMATOMA [None]
  - HAEMORRHAGIC STROKE [None]
  - HYPOTENSION [None]
  - NECROSIS [None]
  - PNEUMONIA [None]
  - POST PROCEDURAL COMPLICATION [None]
  - RENAL FAILURE ACUTE [None]
  - RESPIRATORY FAILURE [None]
  - SIMPLE PARTIAL SEIZURES [None]
  - STAPHYLOCOCCAL INFECTION [None]
  - STENOTROPHOMONAS INFECTION [None]
  - WOUND DEHISCENCE [None]
